FAERS Safety Report 24075542 (Version 1)
Quarter: 2024Q3

REPORT INFORMATION
  Report Type: Spontaneous
  Country: US (occurrence: US)
  Receive Date: 20240710
  Receipt Date: 20240710
  Transmission Date: 20241017
  Serious: No
  Sender: EISAI
  Company Number: US-Eisai-EC-2024-166847

PATIENT
  Age: 14 Year
  Sex: Female

DRUGS (6)
  1. FYCOMPA [Suspect]
     Active Substance: PERAMPANEL
     Indication: Partial seizures
     Dosage: DOSE AND FREQUENCY UNKNOWN
     Route: 048
  2. FYCOMPA [Suspect]
     Active Substance: PERAMPANEL
     Dosage: DOSE INCREASED AND FREQUENCY UNKNOWN
     Route: 048
  3. FYCOMPA [Suspect]
     Active Substance: PERAMPANEL
     Dosage: FREQUENCY UNKNOWN
     Route: 048
  4. FYCOMPA [Suspect]
     Active Substance: PERAMPANEL
     Dosage: DOSE AND FREQUENCY UNKNOWN (WEANING PATIENT OFF)
     Route: 048
  5. VIMPAT [Concomitant]
     Active Substance: LACOSAMIDE
  6. CLOBAZAM [Concomitant]
     Active Substance: CLOBAZAM

REACTIONS (1)
  - Seizure [Unknown]
